FAERS Safety Report 11073332 (Version 1)
Quarter: 2015Q2

REPORT INFORMATION
  Report Type: Spontaneous
  Country: TR (occurrence: TR)
  Receive Date: 20150428
  Receipt Date: 20150428
  Transmission Date: 20150821
  Serious: Yes (Death, Hospitalization)
  Sender: FDA-Public Use
  Company Number: TR-CUBIST PHARMACEUTICALS, INC.-2015CBST000503

PATIENT

DRUGS (2)
  1. IMIPENEM [Suspect]
     Active Substance: IMIPENEM
     Indication: NECROTISING FASCIITIS
     Dosage: 500 MG, Q6H
     Route: 042
  2. CUBICIN [Suspect]
     Active Substance: DAPTOMYCIN
     Indication: NECROTISING FASCIITIS
     Dosage: 4 MG/KG, QD
     Route: 042

REACTIONS (7)
  - Multi-organ failure [Fatal]
  - Disseminated intravascular coagulation [None]
  - Hypotension [None]
  - Sepsis [Unknown]
  - Pseudomonas infection [Unknown]
  - General physical health deterioration [Unknown]
  - Metabolic acidosis [None]
